FAERS Safety Report 9026235 (Version 1)
Quarter: 2013Q1

REPORT INFORMATION
  Report Type: Spontaneous
  Country: BR (occurrence: BR)
  Receive Date: 20130123
  Receipt Date: 20130123
  Transmission Date: 20140127
  Serious: Yes (Death, Hospitalization, Other)
  Sender: FDA-Public Use
  Company Number: PHHY2013BR005860

PATIENT
  Age: 85 Year
  Sex: Female
  Weight: 82 kg

DRUGS (7)
  1. DIOVAN HCT [Suspect]
     Indication: HYPERTENSION
     Dosage: 1 DF, DAILY
     Route: 048
     Dates: start: 2007
  2. SOMALGIN [Concomitant]
     Indication: CARDIAC DISORDER
     Dosage: 1 DF, DAILY
     Route: 048
  3. SUSTRATE [Concomitant]
     Indication: CARDIAC DISORDER
     Dosage: 4 DF, DAILY
     Route: 048
  4. RITMONORM [Concomitant]
     Indication: CARDIAC DISORDER
     Dosage: 1 DF, DAILY
     Route: 048
  5. SELOZOK [Concomitant]
     Dosage: 0.5 DF, DAILY
     Route: 048
  6. SIMVASTATIN [Concomitant]
     Indication: BLOOD CHOLESTEROL ABNORMAL
     Dosage: 1 DF, DAILY
     Route: 048
  7. CHONDROITIN W/GLUCOSAMINE [Concomitant]
     Indication: CHONDROPATHY
     Dosage: 1 DF, DAILY
     Route: 048

REACTIONS (6)
  - Respiratory failure [Fatal]
  - Bladder neoplasm [Fatal]
  - Haemorrhagic anaemia [Fatal]
  - Haemorrhage [Not Recovered/Not Resolved]
  - Dementia Alzheimer^s type [Not Recovered/Not Resolved]
  - Depression [Not Recovered/Not Resolved]
